FAERS Safety Report 17687302 (Version 1)
Quarter: 2020Q2

REPORT INFORMATION
  Report Type: Spontaneous
  Country: US (occurrence: US)
  Receive Date: 20200421
  Receipt Date: 20200421
  Transmission Date: 20200714
  Serious: No
  Sender: FDA-Public Use
  Company Number: US-ASTRAZENECA-2020SE49938

PATIENT

DRUGS (1)
  1. CALQUENCE [Suspect]
     Active Substance: ACALABRUTINIB
     Indication: CORONAVIRUS INFECTION
     Route: 048

REACTIONS (3)
  - Incorrect route of product administration [Unknown]
  - Coronavirus infection [Unknown]
  - Product preparation issue [Unknown]
